FAERS Safety Report 8398469-3 (Version None)
Quarter: 2012Q2

REPORT INFORMATION
  Report Type: 
  Country: None (occurrence: None)
  Receive Date: 20120531
  Receipt Date: 20120524
  Transmission Date: 20120825
  Serious: Yes (Hospitalization)
  Sender: FDA-Public Use
  Company Number: DE-ABBOTT-12P-062-0934036-00

PATIENT
  Sex: Female

DRUGS (5)
  1. ENANTONE-GYN MONATSDEPOT [Suspect]
     Indication: MIGRAINE
     Route: 058
     Dates: start: 20080501, end: 20100601
  2. LEUPROLIDE ACETATE [Suspect]
     Indication: MIGRAINE
     Route: 058
     Dates: start: 20101001, end: 20111101
  3. DESLORATADINE [Concomitant]
     Indication: HISTAMINE INTOLERANCE
  4. ENANTONE-GYN MONATSDEPOT [Suspect]
     Indication: HISTAMINE INTOLERANCE
  5. LEUPROLIDE ACETATE [Suspect]
     Indication: HISTAMINE INTOLERANCE

REACTIONS (5)
  - ABDOMINAL PAIN LOWER [None]
  - INTERVERTEBRAL DISC PROTRUSION [None]
  - OFF LABEL USE [None]
  - MASTOCYTOSIS [None]
  - MUSCLE ATROPHY [None]
